FAERS Safety Report 15488646 (Version 2)
Quarter: 2018Q4

REPORT INFORMATION
  Report Type: Spontaneous
  Country: US (occurrence: US)
  Receive Date: 20181011
  Receipt Date: 20181108
  Transmission Date: 20190205
  Serious: Yes (Hospitalization, Other)
  Sender: FDA-Public Use
  Company Number: US-PFIZER INC-2018400886

PATIENT
  Age: 82 Year
  Sex: Female
  Weight: 86.64 kg

DRUGS (21)
  1. CORGARD [Concomitant]
     Active Substance: NADOLOL
     Indication: PERICARDIAL EFFUSION
     Dosage: 80 MG, 1X/DAY
     Route: 048
  2. MIRAPEX [Concomitant]
     Active Substance: PRAMIPEXOLE DIHYDROCHLORIDE
     Indication: RESTLESS LEGS SYNDROME
     Dosage: 0.25 MG, 1X/DAY
     Route: 048
  3. VITAMIN D3 [Concomitant]
     Active Substance: CHOLECALCIFEROL
     Dosage: 5000 IU, UNK
     Dates: start: 201701
  4. CYMBALTA [Concomitant]
     Active Substance: DULOXETINE HYDROCHLORIDE
     Indication: PAIN
     Dosage: 50 MG, 1X/DAY
     Route: 048
  5. PREDNISOLONE. [Concomitant]
     Active Substance: PREDNISOLONE
     Indication: EYE DISORDER
     Dosage: 2 GTT, 1X/DAY (1 % SOLUTION 1 DROP EACH EYE 1 TIME DAILY)
     Route: 047
     Dates: start: 2017
  6. IRON [Concomitant]
     Active Substance: IRON
     Dosage: 325 MG, UNK (4 DAYS PER WEEK)
     Dates: start: 201701
  7. TRAMADOL. [Concomitant]
     Active Substance: TRAMADOL
     Indication: PAIN
     Dosage: 50 MG, AS NEEDED
     Route: 048
     Dates: start: 2017
  8. TORSEMIDE. [Concomitant]
     Active Substance: TORSEMIDE
     Indication: RESTLESS LEGS SYNDROME
  9. VITAMIN B12 [Concomitant]
     Active Substance: CYANOCOBALAMIN
     Indication: PERNICIOUS ANAEMIA
     Dosage: 1000 UG, UNK
  10. ORENCIA [Concomitant]
     Active Substance: ABATACEPT
     Indication: RHEUMATOID ARTHRITIS
     Dosage: 7.5 MG, UNK (INFUSION EVERY 28 DAYS )
  11. LYRICA [Suspect]
     Active Substance: PREGABALIN
     Indication: POST HERPETIC NEURALGIA
     Dosage: 150 MG, DAILY
     Dates: start: 20180930
  12. SYNTHROID [Concomitant]
     Active Substance: LEVOTHYROXINE SODIUM
     Indication: THYROID DISORDER
     Dosage: 50 UG, 1X/DAY
     Route: 048
  13. TORSEMIDE. [Concomitant]
     Active Substance: TORSEMIDE
     Indication: PERICARDIAL EFFUSION
     Dosage: 10 MG, UNK (DAILY 3 TIMES PER WEEK)
     Route: 048
  14. MAGNESIUM OXIDE. [Concomitant]
     Active Substance: MAGNESIUM OXIDE
     Dosage: 400 MG, UNK
     Dates: start: 201701
  15. LYRICA [Suspect]
     Active Substance: PREGABALIN
     Indication: HERPES ZOSTER
     Dosage: 100 MG, 3X/DAY
     Route: 048
     Dates: start: 2016
  16. CELLCEPT [Concomitant]
     Active Substance: MYCOPHENOLATE MOFETIL\MYCOPHENOLATE MOFETIL HYDROCHLORIDE
     Indication: VISUAL IMPAIRMENT
     Dosage: 500 MG, 2X/DAY
     Route: 048
  17. LOSARTAN. [Concomitant]
     Active Substance: LOSARTAN
     Dosage: 100 MG, 1X/DAY
     Route: 048
  18. PRILOSEC [Concomitant]
     Active Substance: OMEPRAZOLE MAGNESIUM
     Indication: VARICES OESOPHAGEAL
     Dosage: 20 MG, 2X/DAY
     Route: 048
     Dates: start: 201701
  19. PREDNISONE. [Concomitant]
     Active Substance: PREDNISONE
     Indication: RHEUMATOID ARTHRITIS
     Dosage: 5 MG, 1X/DAY
  20. VITAMIN A [Concomitant]
     Active Substance: VITAMIN A
     Dosage: 10000 IU, UNK
     Dates: start: 201701
  21. BABY ASPIRIN [Concomitant]
     Active Substance: ASPIRIN
     Dosage: 81 MG, 1X/DAY
     Dates: start: 2017

REACTIONS (6)
  - Visual impairment [Unknown]
  - Intentional product misuse [Unknown]
  - Prescription drug used without a prescription [Unknown]
  - Malaise [Unknown]
  - Bleeding varicose vein [Unknown]
  - Blindness [Unknown]

NARRATIVE: CASE EVENT DATE: 20180930
